FAERS Safety Report 4606920-7 (Version None)
Quarter: 2005Q1

REPORT INFORMATION
  Report Type: 
  Country: None (occurrence: None)
  Receive Date: 20050309
  Receipt Date: 20050224
  Transmission Date: 20050727
  Serious: Yes (Death)
  Sender: FDA-Public Use
  Company Number: 2004106809

PATIENT
  Age: 24 Year
  Sex: Male

DRUGS (1)
  1. NEURONTIN [Suspect]
     Indication: BACK PAIN
     Dates: start: 20020701, end: 20021113

REACTIONS (4)
  - COMPLETED SUICIDE [None]
  - INJURY [None]
  - MENTAL DISORDER [None]
  - OVERDOSE [None]
